FAERS Safety Report 5737700-7 (Version None)
Quarter: 2008Q2

REPORT INFORMATION
  Report Type: 
  Country: None (occurrence: None)
  Receive Date: 20080512
  Receipt Date: 20080512
  Transmission Date: 20081010
  Serious: Yes (Life-Threatening)
  Sender: FDA-Public Use
  Company Number: None

PATIENT
  Age: 77 Year
  Sex: Female
  Weight: 97.5234 kg

DRUGS (1)
  1. DIGOXIN .125ML ACTAVIS [Suspect]
     Indication: CARDIAC DISORDER
     Dosage: ONE TABLET ONCE A DAY PO
     Route: 048
     Dates: start: 20080307, end: 20080505

REACTIONS (3)
  - PHARMACEUTICAL PRODUCT COMPLAINT [None]
  - RENAL FAILURE ACUTE [None]
  - THERAPEUTIC AGENT TOXICITY [None]
